FAERS Safety Report 4947518-0 (Version None)
Quarter: 2006Q1

REPORT INFORMATION
  Report Type: 
  Country: None (occurrence: None)
  Receive Date: 20060314
  Receipt Date: 20060308
  Transmission Date: 20060701
  Serious: Yes (Hospitalization)
  Sender: FDA-Public Use
  Company Number: DE-2006-005002

PATIENT
  Age: 58 Year
  Weight: 85 kg

DRUGS (1)
  1. ULTRAVIST 300 [Suspect]
     Indication: COMPUTERISED TOMOGRAM ABDOMEN
     Dosage: 100 ML, 1 DOSE, INTRAVENOUS
     Route: 042
     Dates: start: 20060221, end: 20060221

REACTIONS (3)
  - CARDIOVASCULAR DISORDER [None]
  - LOSS OF CONSCIOUSNESS [None]
  - MUSCLE SPASMS [None]
